FAERS Safety Report 4579416-9 (Version None)
Quarter: 2005Q1

REPORT INFORMATION
  Report Type: 
  Country: None (occurrence: None)
  Receive Date: 20050209
  Receipt Date: 20050125
  Transmission Date: 20050727
  Serious: Yes (Death)
  Sender: FDA-Public Use
  Company Number: USA050189203

PATIENT
  Age: 79 Year
  Sex: Male

DRUGS (1)
  1. HUMULIN-HUMAN INSULIN (RDNA) (HU [Suspect]
     Indication: DIABETES MELLITUS
     Dates: end: 20010901

REACTIONS (1)
  - CARDIAC DISORDER [None]
